FAERS Safety Report 4533594-6 (Version None)
Quarter: 2004Q4

REPORT INFORMATION
  Report Type: 
  Country: None (occurrence: None)
  Receive Date: 20041221
  Receipt Date: 20041210
  Transmission Date: 20050328
  Serious: Yes (Life-Threatening, Hospitalization)
  Sender: FDA-Public Use
  Company Number: JP-JNJFOC-20041200936

PATIENT
  Sex: Female

DRUGS (12)
  1. RISPERDAL [Suspect]
     Route: 049
  2. RISPERDAL [Suspect]
     Indication: SCHIZOPHRENIA
     Route: 049
  3. HALOMONTH [Suspect]
     Indication: SCHIZOPHRENIA
  4. OLANZAPINE [Suspect]
     Route: 049
  5. OLANZAPINE [Suspect]
     Indication: SCHIZOPHRENIA
     Route: 049
  6. CIMETIDINE [Concomitant]
     Indication: HEPATIC CIRRHOSIS
  7. BIPERIDEN HYDROCHLORIDE [Concomitant]
     Indication: SCHIZOPHRENIA
  8. ISOLEUCINE LEUCINE VALINE [Concomitant]
     Indication: HEPATIC CIRRHOSIS
  9. FLUNITRAZEPAM [Concomitant]
     Indication: SCHIZOPHRENIA
  10. ZOPICLONE [Concomitant]
     Indication: SCHIZOPHRENIA
  11. SENNOSIDE [Concomitant]
     Indication: HEPATIC CIRRHOSIS
  12. ASPARTATE POTASSIUM [Concomitant]
     Indication: HEPATIC CIRRHOSIS

REACTIONS (20)
  - ABNORMAL BEHAVIOUR [None]
  - BLOOD PRESSURE INCREASED [None]
  - BLOOD TEST ABNORMAL [None]
  - CACHEXIA [None]
  - CARDIAC FAILURE ACUTE [None]
  - DEHYDRATION [None]
  - DELUSION [None]
  - DIET REFUSAL [None]
  - DYSPNOEA [None]
  - EYE DISORDER [None]
  - HAEMATEMESIS [None]
  - HEPATIC CIRRHOSIS [None]
  - HYPERHIDROSIS [None]
  - HYPOXIA [None]
  - LOSS OF CONSCIOUSNESS [None]
  - NEUROLEPTIC MALIGNANT SYNDROME [None]
  - PULMONARY OEDEMA [None]
  - RESPIRATORY ARREST [None]
  - TREMOR [None]
  - WHEEZING [None]
